FAERS Safety Report 4761503-3 (Version None)
Quarter: 2005Q3

REPORT INFORMATION
  Report Type: 
  Country: None (occurrence: None)
  Receive Date: 20050906
  Receipt Date: 20050824
  Transmission Date: 20060218
  Serious: Yes (Other)
  Sender: FDA-Public Use
  Company Number: PT-GLAXOSMITHKLINE-B0391767A

PATIENT
  Age: 4 Year
  Sex: Male

DRUGS (1)
  1. SERETIDE [Suspect]
     Indication: COUGH
     Route: 055
     Dates: start: 20050501

REACTIONS (6)
  - ACCIDENTAL OVERDOSE [None]
  - ADRENAL SUPPRESSION [None]
  - ANOREXIA [None]
  - C-REACTIVE PROTEIN INCREASED [None]
  - PLATELET COUNT INCREASED [None]
  - RED BLOOD CELL ABNORMALITY [None]
